FAERS Safety Report 24006642 (Version 1)
Quarter: 2024Q2

REPORT INFORMATION
  Report Type: Spontaneous
  Country: US (occurrence: None)
  Receive Date: 20240624
  Receipt Date: 20240624
  Transmission Date: 20240716
  Serious: No
  Sender: FDA-Public Use
  Company Number: None

PATIENT
  Sex: Male

DRUGS (1)
  1. PHOSPHOLINE IODIDE [Suspect]
     Active Substance: ECHOTHIOPHATE IODIDE
     Indication: Open angle glaucoma
     Dosage: FREQ: INSTILL 1` DROP INTO BOTH EYES TWICE A DAY
     Dates: start: 20230503

REACTIONS (3)
  - Prostate cancer [None]
  - Therapy interrupted [None]
  - Product use issue [None]
